FAERS Safety Report 16177273 (Version 1)
Quarter: 2019Q2

REPORT INFORMATION
  Report Type: Other
  Country: ES (occurrence: ES)
  Receive Date: 20190410
  Receipt Date: 20190410
  Transmission Date: 20190711
  Serious: Yes (Disabling)
  Sender: FDA-Public Use
  Company Number: ES-CELLTRION INC.-2019ES020231

PATIENT

DRUGS (1)
  1. TRUXIMA [Suspect]
     Active Substance: RITUXIMAB-ABBS
     Indication: MYOSITIS
     Dosage: 1000 MG D1,14
     Route: 041
     Dates: start: 20190228, end: 20190314

REACTIONS (3)
  - Asthenia [Recovering/Resolving]
  - Product use in unapproved indication [Unknown]
  - Pallor [Recovering/Resolving]

NARRATIVE: CASE EVENT DATE: 20190228
